FAERS Safety Report 21095472 (Version 1)
Quarter: 2022Q3

REPORT INFORMATION
  Report Type: Spontaneous
  Country: US (occurrence: None)
  Receive Date: 20220718
  Receipt Date: 20220718
  Transmission Date: 20221027
  Serious: Yes (Hospitalization)
  Sender: FDA-Public Use
  Company Number: None

PATIENT
  Sex: Male
  Weight: 104.33 kg

DRUGS (15)
  1. ABIRATERONE ACETATE [Suspect]
     Active Substance: ABIRATERONE ACETATE
     Indication: Prostate cancer
     Dosage: FREQUENCY : DAILY;?
     Dates: start: 202201
  2. ALBUTEROL [Concomitant]
     Active Substance: ALBUTEROL
  3. Alumina-Magnesia-Simethicone [Concomitant]
  4. CASODEX [Concomitant]
     Active Substance: BICALUTAMIDE
  5. CORTISONE [Concomitant]
     Active Substance: CORTISONE
  6. ELIQUIS [Concomitant]
     Active Substance: APIXABAN
  7. FLOMAX [Concomitant]
     Active Substance: TAMSULOSIN HYDROCHLORIDE
  8. IPRATROPIUM [Concomitant]
     Active Substance: IPRATROPIUM
  9. LISINOPRIL [Concomitant]
     Active Substance: LISINOPRIL
  10. LITHIUM [Concomitant]
     Active Substance: LITHIUM
  11. TYLENOL 8 HR ARTHRITIS PAIN [Concomitant]
     Active Substance: ACETAMINOPHEN
  12. VITAMIN B12 [Concomitant]
     Active Substance: CYANOCOBALAMIN
  13. VITAMIN C [Concomitant]
     Active Substance: ASCORBIC ACID
  14. VITAMIN D3 [Concomitant]
     Active Substance: CHOLECALCIFEROL
  15. ZOFRAN [Concomitant]
     Active Substance: ONDANSETRON HYDROCHLORIDE

REACTIONS (4)
  - Constipation [None]
  - Fatigue [None]
  - Nausea [None]
  - Vomiting [None]
